FAERS Safety Report 4766199-2 (Version None)
Quarter: 2005Q3

REPORT INFORMATION
  Report Type: 
  Country: None (occurrence: None)
  Receive Date: 20050912
  Receipt Date: 20050606
  Transmission Date: 20060218
  Serious: Yes (Hospitalization, Disabling, Other)
  Sender: FDA-Public Use
  Company Number: US-MERCK-0506USA01027

PATIENT
  Age: 49 Year
  Sex: Male
  Weight: 61 kg

DRUGS (10)
  1. PHENOBARBITAL (LILLY) [Concomitant]
     Indication: EPILEPSY
     Route: 065
     Dates: start: 19680101
  2. FOLIC ACID [Concomitant]
     Route: 065
     Dates: start: 19980301
  3. ZITHROMAX [Concomitant]
     Route: 065
  4. ATROVENT [Concomitant]
     Route: 065
  5. LIPITOR [Concomitant]
     Indication: BLOOD CHOLESTEROL INCREASED
     Route: 065
     Dates: start: 20020201
  6. DILANTIN [Concomitant]
     Indication: EPILEPSY
     Route: 065
     Dates: start: 19680101
  7. DILANTIN [Concomitant]
     Route: 065
     Dates: start: 19680101
  8. VIOXX [Suspect]
     Indication: OSTEOARTHRITIS
     Route: 048
     Dates: start: 20000803, end: 20030920
  9. VIOXX [Suspect]
     Indication: ARTHRITIS
     Route: 048
     Dates: start: 20000803, end: 20030920
  10. AMOXICILLIN [Concomitant]
     Route: 065

REACTIONS (1)
  - MYOCARDIAL INFARCTION [None]
